FAERS Safety Report 7858266 (Version 5)
Quarter: 2014Q2

REPORT INFORMATION
  Report Type: Spontaneous
  Country: US (occurrence: US)
  Receive Date: 20110316
  Receipt Date: 20140409
  Transmission Date: 20141212
  Serious: Yes (Hospitalization, Other)
  Sender: FDA-Public Use
  Company Number: US-ASTRAZENECA-2011SE12954

PATIENT
  Age: 62 Year
  Sex: Female
  Weight: 63 kg

DRUGS (4)
  1. SYMBICORT PMDI [Suspect]
     Indication: CHRONIC OBSTRUCTIVE PULMONARY DISEASE
     Dosage: 160-4.5 BID
     Route: 055
     Dates: start: 2007
  2. SYMBICORT PMDI [Suspect]
     Indication: EMPHYSEMA
     Dosage: 160-4.5 BID
     Route: 055
     Dates: start: 2007
  3. ADVAIR [Suspect]
     Route: 065
  4. ORAL STEROIDS [Concomitant]
     Indication: CONDITION AGGRAVATED
     Route: 048

REACTIONS (5)
  - Hip fracture [Recovering/Resolving]
  - Abdominal abscess [Unknown]
  - Emphysema [Unknown]
  - Malignant melanoma [Unknown]
  - Hypercapnia [Unknown]
